FAERS Safety Report 5618488-7 (Version None)
Quarter: 2008Q1

REPORT INFORMATION
  Report Type: 
  Country: None (occurrence: None)
  Receive Date: 20080207
  Receipt Date: 20080128
  Transmission Date: 20080703
  Serious: Yes (Hospitalization)
  Sender: FDA-Public Use
  Company Number: B0506283A

PATIENT
  Age: 53 Year
  Sex: Male
  Weight: 88 kg

DRUGS (5)
  1. AVANDIA [Suspect]
     Dosage: 4MG PER DAY
     Route: 048
     Dates: start: 20070201, end: 20070601
  2. AVANDAMET [Suspect]
     Route: 048
     Dates: start: 20070601
  3. SIMVASTATIN [Concomitant]
     Route: 048
  4. ANTIHYPERTENSIVE [Concomitant]
     Route: 048
  5. METFORMIN HCL [Concomitant]
     Dosage: 1000MG VARIABLE DOSE
     Route: 065

REACTIONS (2)
  - HEPATIC NEOPLASM [None]
  - HEPATIC STEATOSIS [None]
